FAERS Safety Report 25885130 (Version 1)
Quarter: 2025Q4

REPORT INFORMATION
  Report Type: Spontaneous
  Country: US (occurrence: US)
  Receive Date: 20251006
  Receipt Date: 20251006
  Transmission Date: 20260118
  Serious: No
  Sender: RANBAXY
  Company Number: US-SUN PHARMACEUTICAL INDUSTRIES LTD-2025R1-518129

PATIENT
  Sex: Male
  Weight: 68.027 kg

DRUGS (2)
  1. CEQUA [Suspect]
     Active Substance: CYCLOSPORINE
     Indication: Dry eye
     Dosage: UNK UNK, BID
     Route: 047
  2. MIEBO [Concomitant]
     Active Substance: PERFLUOROHEXYLOCTANE
     Indication: Dry eye
     Dosage: UNK, QID
     Route: 047

REACTIONS (4)
  - Therapeutic product effect incomplete [Unknown]
  - Product storage error [Unknown]
  - Poor quality product administered [Unknown]
  - Keratitis [Unknown]
